FAERS Safety Report 7023630-X (Version None)
Quarter: 2010Q3

REPORT INFORMATION
  Report Type: 
  Country: None (occurrence: None)
  Receive Date: 20100930
  Receipt Date: 20100930
  Transmission Date: 20110219
  Serious: Yes (Other)
  Sender: FDA-Public Use
  Company Number: None

PATIENT
  Age: 16 Year
  Sex: Female
  Weight: 66.4 kg

DRUGS (3)
  1. PLAVIX [Suspect]
     Dosage: 75MG PLAVIX ONCE DAILY ORALLY
     Route: 048
     Dates: start: 20100602, end: 20100725
  2. GORE HELEX CARDIAC SEPTAL OCCULER [Concomitant]
  3. MEDROXYPROGESTERONE [Concomitant]

REACTIONS (10)
  - AMNESIA [None]
  - APHASIA [None]
  - ASTHENIA [None]
  - BALANCE DISORDER [None]
  - CONFUSIONAL STATE [None]
  - DYSARTHRIA [None]
  - DYSSTASIA [None]
  - FATIGUE [None]
  - HEART RATE IRREGULAR [None]
  - MYDRIASIS [None]
